FAERS Safety Report 7690513-1 (Version None)
Quarter: 2011Q3

REPORT INFORMATION
  Report Type: 
  Country: None (occurrence: None)
  Receive Date: 20110818
  Receipt Date: 20110804
  Transmission Date: 20111222
  Serious: Yes (Hospitalization, Other)
  Sender: FDA-Public Use
  Company Number: IN-RANBAXY-2011RR-46437

PATIENT
  Age: 29 Year
  Sex: Female

DRUGS (2)
  1. ZOLPIDEM TARTRATE [Suspect]
     Indication: SLEEP DISORDER
     Dosage: 100 MG, UNK
     Route: 065
     Dates: start: 20080101
  2. ZOLPIDEM TARTRATE [Suspect]
     Dosage: 700-800 MG/DAY
     Route: 065
     Dates: start: 20080101

REACTIONS (2)
  - DRUG DEPENDENCE [None]
  - DRUG ABUSE [None]
